FAERS Safety Report 22135952 (Version 1)
Quarter: 2023Q1

REPORT INFORMATION
  Report Type: Spontaneous
  Country: NO (occurrence: NO)
  Receive Date: 20230324
  Receipt Date: 20230324
  Transmission Date: 20230417
  Serious: Yes (Disabling, Other)
  Sender: FDA-Public Use
  Company Number: None

PATIENT
  Age: 53 Year
  Sex: Female
  Weight: 50 kg

DRUGS (6)
  1. ACLASTA [Suspect]
     Active Substance: ZOLEDRONIC ACID
     Indication: Osteoporosis
     Dosage: UNK (M05BA08 - ZOLEDRONSYRE) (INFUSJONSV?SKE, OPPL?SNING)
     Route: 065
     Dates: start: 20150101, end: 20171231
  2. PROLIA [Suspect]
     Active Substance: DENOSUMAB
     Indication: Osteoporosis
     Dosage: 60 MG (M05BX04 - DENOSUMAB) (INJEKSJONSV?SKE, OPPL?SNING)
     Route: 065
     Dates: start: 2016
  3. ACLIDINIUM BROMIDE [Concomitant]
     Active Substance: ACLIDINIUM BROMIDE
     Indication: Product used for unknown indication
     Dosage: UNK (R03BB05 - AKLIDINIUMBROMID)
     Route: 065
  4. FLUTICASONE PROPIONATE\FORMOTEROL FUMARATE [Concomitant]
     Active Substance: FLUTICASONE PROPIONATE\FORMOTEROL FUMARATE
     Indication: Product used for unknown indication
     Dosage: UNK (R03AK11 - FORMOTEROL OG FLUTIKASON)
     Route: 065
  5. ALBUTEROL [Concomitant]
     Active Substance: ALBUTEROL
     Indication: Product used for unknown indication
     Dosage: UNK (R03AC02 - SALBUTAMOL)
     Route: 065
  6. NORSPAN [Concomitant]
     Active Substance: BUPRENORPHINE
     Indication: Rheumatic disorder
     Dosage: UNK (N02AE01 - BUPRENORFIN)
     Route: 065

REACTIONS (10)
  - Tooth loss [Recovering/Resolving]
  - Osteonecrosis of jaw [Unknown]
  - Mastication disorder [Not Recovered/Not Resolved]
  - Osteitis [Unknown]
  - Oral pain [Unknown]
  - Impaired healing [Unknown]
  - Discomfort [Unknown]
  - Pain in jaw [Unknown]
  - Emotional distress [Not Recovered/Not Resolved]
  - Headache [Unknown]

NARRATIVE: CASE EVENT DATE: 20220101
